FAERS Safety Report 4530411-5 (Version None)
Quarter: 2004Q4

REPORT INFORMATION
  Report Type: 
  Country: None (occurrence: None)
  Receive Date: 20041215
  Receipt Date: 20041207
  Transmission Date: 20050328
  Serious: Yes (Other)
  Sender: FDA-Public Use
  Company Number: 200415685BCC

PATIENT
  Age: 66 Year
  Sex: Female
  Weight: 52.6173 kg

DRUGS (7)
  1. MILK OF MAGNESIA TAB [Suspect]
     Indication: CONSTIPATION
     Dosage: 30-45 ML, QD, ORAL
     Route: 048
     Dates: start: 19990101
  2. ACTONEL [Concomitant]
  3. MULTI-VITAMINS [Concomitant]
  4. VITAMIN B COMPLEX CAP [Concomitant]
  5. VITAMIN E [Concomitant]
  6. FLUOXETINE [Concomitant]
  7. PRILOSEC [Concomitant]

REACTIONS (7)
  - ABDOMINAL ADHESIONS [None]
  - EATING DISORDER [None]
  - FATIGUE [None]
  - FEELING ABNORMAL [None]
  - GASTRIC DISORDER [None]
  - KIDNEY ENLARGEMENT [None]
  - URETERIC OBSTRUCTION [None]
